FAERS Safety Report 16634752 (Version 1)
Quarter: 2019Q3

REPORT INFORMATION
  Report Type: Spontaneous
  Country: US (occurrence: US)
  Receive Date: 20190726
  Receipt Date: 20190726
  Transmission Date: 20191004
  Serious: Yes (Other)
  Sender: FDA-Public Use
  Company Number: US-INFO-000816

PATIENT
  Sex: Female
  Weight: 55.79 kg

DRUGS (4)
  1. ZOLEDRONIC ACID INJECTION [Suspect]
     Active Substance: ZOLEDRONIC ACID
     Indication: OSTEOPOROSIS
     Dosage: AS DIRECTED
     Route: 041
     Dates: start: 20190610, end: 20190610
  2. MULTIPLE VITAMIN [Concomitant]
     Active Substance: VITAMINS
     Dosage: QD
     Route: 048
  3. CALCIUM [Concomitant]
     Active Substance: CALCIUM
     Route: 048
  4. VITAMIN D [Concomitant]
     Active Substance: VITAMIN D NOS
     Dosage: AS DIRECTED
     Route: 048

REACTIONS (2)
  - Bone pain [Recovered/Resolved]
  - Off label use [Unknown]
